FAERS Safety Report 6981512-3 (Version None)
Quarter: 2010Q3

REPORT INFORMATION
  Report Type: 
  Country: None (occurrence: None)
  Receive Date: 20100914
  Receipt Date: 20100902
  Transmission Date: 20110219
  Serious: Yes (Other)
  Sender: FDA-Public Use
  Company Number: PHHY2010DO58281

PATIENT
  Age: 75 Year
  Sex: Male

DRUGS (2)
  1. RASILEZ [Suspect]
     Dosage: 300 MG PER DAY
     Route: 048
  2. LOSARTAN POTASSIUM [Concomitant]
     Dosage: 100 MG PER DAY
     Route: 048

REACTIONS (3)
  - CREATININE RENAL CLEARANCE DECREASED [None]
  - PROTEINURIA [None]
  - THROMBOCYTOPENIA [None]
